FAERS Safety Report 4896802-8 (Version None)
Quarter: 2006Q1

REPORT INFORMATION
  Report Type: 
  Country: None (occurrence: None)
  Receive Date: 20060126
  Receipt Date: 20060117
  Transmission Date: 20060701
  Serious: Yes (Hospitalization, Disabling)
  Sender: FDA-Public Use
  Company Number: 13100

PATIENT
  Age: 20 Year
  Sex: Female
  Weight: 99 kg

DRUGS (11)
  1. METHOTREXATE [Suspect]
     Indication: LEUKAEMIA
     Dosage: 12.5 MG PER_CYCLE IT
     Route: 038
     Dates: start: 20051007, end: 20051107
  2. VANCOMYCIN [Concomitant]
  3. CIPROFLOXACIN [Concomitant]
  4. DOMPERIDONE [Concomitant]
  5. CYCLOPHOSPHAMIDE [Concomitant]
  6. MERCAPTOPURINE [Concomitant]
  7. CYTARABINE [Concomitant]
  8. TAZOCIN [Concomitant]
  9. GENTAMICIN [Concomitant]
  10. TERICOPLANIN [Concomitant]
  11. COTRIM [Concomitant]

REACTIONS (6)
  - DYSARTHRIA [None]
  - HEADACHE [None]
  - HEMIPLEGIA [None]
  - HYPOAESTHESIA [None]
  - PARAESTHESIA [None]
  - SPEECH DISORDER [None]
